FAERS Safety Report 5179578-9 (Version None)
Quarter: 2006Q4

REPORT INFORMATION
  Report Type: 
  Country: None (occurrence: None)
  Receive Date: 20061211
  Receipt Date: 20061129
  Transmission Date: 20070319
  Serious: Yes (Other)
  Sender: FDA-Public Use
  Company Number: 2006147613

PATIENT
  Age: 36 Year
  Sex: Female

DRUGS (4)
  1. CADUET [Suspect]
     Indication: BLOOD CHOLESTEROL INCREASED
     Dosage: 10 MG/5 MG; 10 MG/5MG (1 IN 1 D), ORAL
     Route: 048
     Dates: start: 20060601, end: 20060801
  2. CADUET [Suspect]
     Indication: DYSLIPIDAEMIA
     Dosage: 10 MG/5 MG; 10 MG/5MG (1 IN 1 D), ORAL
     Route: 048
     Dates: start: 20060601, end: 20060801
  3. CADUET [Suspect]
     Indication: HYPERTENSION
     Dosage: 10 MG/5 MG; 10 MG/5MG (1 IN 1 D), ORAL
     Route: 048
     Dates: start: 20060601, end: 20060801
  4. SIMVASTATIN [Concomitant]

REACTIONS (5)
  - CONSTIPATION [None]
  - DEHYDRATION [None]
  - DYSPEPSIA [None]
  - OCULAR HYPERAEMIA [None]
  - SERUM FERRITIN INCREASED [None]
